FAERS Safety Report 8018749-0 (Version None)
Quarter: 2012Q1

REPORT INFORMATION
  Report Type: 
  Country: None (occurrence: None)
  Receive Date: 20120103
  Receipt Date: 20120103
  Transmission Date: 20120608
  Serious: Yes (Other)
  Sender: FDA-Public Use
  Company Number: None

PATIENT
  Age: 58 Year
  Sex: Female
  Weight: 81.646 kg

DRUGS (1)
  1. CLOBEX [Suspect]
     Indication: PSORIASIS
     Dosage: ~1 TEASPOON
     Route: 061
     Dates: start: 20110915, end: 20110930

REACTIONS (2)
  - DRY SKIN [None]
  - SKIN EXFOLIATION [None]
